FAERS Safety Report 4291771-6 (Version None)
Quarter: 2004Q1

REPORT INFORMATION
  Report Type: 
  Country: None (occurrence: None)
  Receive Date: 20040211
  Receipt Date: 20030312
  Transmission Date: 20041129
  Serious: No
  Sender: FDA-Public Use
  Company Number: US-GLAXOSMITHKLINE-A0399998A

PATIENT
  Age: 40 Year
  Sex: Female

DRUGS (2)
  1. IMITREX [Suspect]
     Indication: MIGRAINE
     Route: 058
     Dates: start: 20030312
  2. FLONASE [Concomitant]
     Route: 045

REACTIONS (2)
  - FLUSHING [None]
  - RASH [None]
